FAERS Safety Report 6426888-0 (Version None)
Quarter: 2009Q4

REPORT INFORMATION
  Report Type: 
  Country: None (occurrence: None)
  Receive Date: 20091104
  Receipt Date: 20091023
  Transmission Date: 20100525
  Serious: Yes (Disabling)
  Sender: FDA-Public Use
  Company Number: US-WATSON-2009-09020

PATIENT
  Sex: Male
  Weight: 88.889 kg

DRUGS (4)
  1. TEMAZEPAM [Suspect]
     Indication: INSOMNIA
     Dosage: 30 MG, QHS PRN SLEEP
     Route: 065
     Dates: start: 20040101, end: 20040801
  2. TEMAZEPAM [Suspect]
     Indication: ANXIETY
  3. TRAZODONE HYDROCHLORIDE [Suspect]
     Indication: INSOMNIA
     Dosage: 150 MG QPM PRN
     Route: 048
     Dates: start: 20040101, end: 20040801
  4. TRAZODONE HYDROCHLORIDE [Suspect]
     Dosage: UNK

REACTIONS (4)
  - DRUG INEFFECTIVE [None]
  - IMPRISONMENT [None]
  - MEMORY IMPAIRMENT [None]
  - SEXUAL ABUSE [None]
